FAERS Safety Report 5490949-3 (Version None)
Quarter: 2007Q4

REPORT INFORMATION
  Report Type: 
  Country: None (occurrence: None)
  Receive Date: 20071019
  Receipt Date: 20071010
  Transmission Date: 20080405
  Serious: Yes (Hospitalization)
  Sender: FDA-Public Use
  Company Number: FR-ABBOTT-07P-056-0420284-00

PATIENT
  Age: 73 Year
  Sex: Female

DRUGS (7)
  1. DEPAKOTE [Suspect]
     Indication: DEPRESSION
     Route: 048
     Dates: start: 20070601
  2. DEPAKOTE [Suspect]
     Indication: BIPOLAR DISORDER
  3. CYAMEMAZINE [Concomitant]
     Indication: DRUG USE FOR UNKNOWN INDICATION
     Route: 048
  4. MIANSERIN HYDROCHLORIDE [Concomitant]
     Indication: DRUG USE FOR UNKNOWN INDICATION
     Route: 048
  5. HYDROCORTISONE [Concomitant]
     Indication: ADRENAL INSUFFICIENCY
     Route: 048
  6. HYDROCORTISONE [Concomitant]
     Indication: ADRENALECTOMY
  7. HYDROCORTISONE [Concomitant]
     Indication: ADENOMA BENIGN

REACTIONS (5)
  - ANAEMIA MACROCYTIC [None]
  - ARTHRALGIA [None]
  - CHILLS [None]
  - HYPERTHERMIA [None]
  - PALLOR [None]
